FAERS Safety Report 8536934-6 (Version None)
Quarter: 2012Q3

REPORT INFORMATION
  Report Type: 
  Country: None (occurrence: None)
  Receive Date: 20120725
  Receipt Date: 20120703
  Transmission Date: 20120928
  Serious: No
  Sender: FDA-Public Use
  Company Number: US-BAYER-2012-065697

PATIENT
  Age: 78 Year
  Sex: Male

DRUGS (4)
  1. VIAGRA [Concomitant]
  2. STAXYN [Suspect]
     Dosage: UNK UNK, PRN
     Dates: start: 20120130
  3. ASTHMA MEDICATION (INHALER) [Concomitant]
  4. ANTIHYPERTENSIVES [Concomitant]

REACTIONS (1)
  - DRUG INEFFECTIVE [None]
